FAERS Safety Report 22302371 (Version 8)
Quarter: 2023Q4

REPORT INFORMATION
  Report Type: Spontaneous
  Country: US (occurrence: US)
  Receive Date: 20230510
  Receipt Date: 20231127
  Transmission Date: 20240110
  Serious: Yes (Other)
  Sender: FDA-Public Use
  Company Number: US-BRISTOL-MYERS SQUIBB COMPANY-2023-064558

PATIENT
  Age: 71 Year
  Sex: Female

DRUGS (2)
  1. LENALIDOMIDE [Suspect]
     Active Substance: LENALIDOMIDE
     Indication: Plasma cell myeloma
     Dosage: TAKE 1 CAP WHOLE BY MOUTH WITH GLASS OF WATER EVERY MORNING FOR 14 DAYS ON AND 1 WEEK OFF. DON^T BRE
     Route: 048
     Dates: start: 20230208
  2. LENALIDOMIDE [Suspect]
     Active Substance: LENALIDOMIDE
     Dosage: TAKE 1 CAPSULE (25MG) BY MOUTH EVERY DAY
     Route: 048
     Dates: end: 20231026

REACTIONS (11)
  - Blood pressure increased [Recovering/Resolving]
  - Eye swelling [Recovered/Resolved]
  - Off label use [Unknown]
  - Tremor [Unknown]
  - Brain fog [Unknown]
  - Musculoskeletal stiffness [Unknown]
  - Hypersensitivity [Not Recovered/Not Resolved]
  - Eye disorder [Not Recovered/Not Resolved]
  - Product dose omission issue [Recovered/Resolved]
  - Hypoaesthesia [Not Recovered/Not Resolved]
  - Nervousness [Unknown]
